FAERS Safety Report 12625694 (Version 1)
Quarter: 2016Q3

REPORT INFORMATION
  Report Type: Spontaneous
  Country: US (occurrence: None)
  Receive Date: 20160804
  Receipt Date: 20160804
  Transmission Date: 20161109
  Serious: No
  Sender: FDA-Public Use
  Company Number: None

PATIENT
  Age: 44 Year
  Sex: Female

DRUGS (1)
  1. COPAXONE [Suspect]
     Active Substance: GLATIRAMER ACETATE
     Indication: MULTIPLE SCLEROSIS
     Route: 058
     Dates: start: 20140605

REACTIONS (4)
  - Nausea [None]
  - Inappropriate schedule of drug administration [None]
  - Administration site nodule [None]
  - Memory impairment [None]

NARRATIVE: CASE EVENT DATE: 201607
